FAERS Safety Report 18519870 (Version 1)
Quarter: 2020Q4

REPORT INFORMATION
  Report Type: Spontaneous
  Country: US (occurrence: US)
  Receive Date: 20201119
  Receipt Date: 20201119
  Transmission Date: 20210114
  Serious: Yes (Hospitalization)
  Sender: FDA-Public Use
  Company Number: US-LUPIN PHARMACEUTICALS INC.-2020-08893

PATIENT
  Age: 56 Year
  Sex: Female

DRUGS (4)
  1. LORAZEPAM. [Suspect]
     Active Substance: LORAZEPAM
     Indication: ANXIETY
     Dosage: UNK (CHRONIC USE)
     Route: 065
  2. PHENOBARBITAL. [Concomitant]
     Active Substance: PHENOBARBITAL
     Indication: THERAPY CESSATION
     Dosage: UNK (TAPER)
     Route: 065
  3. BUPROPION. [Concomitant]
     Active Substance: BUPROPION
     Indication: PRODUCT USED FOR UNKNOWN INDICATION
     Dosage: UNK
     Route: 065
  4. BUPROPION. [Concomitant]
     Active Substance: BUPROPION
     Dosage: UNK (DOSE REDUCED)
     Route: 065

REACTIONS (5)
  - Poor quality sleep [Recovering/Resolving]
  - Mania [Recovering/Resolving]
  - Anxiety [Recovering/Resolving]
  - Condition aggravated [Recovering/Resolving]
  - Withdrawal syndrome [Recovering/Resolving]
